FAERS Safety Report 6309672-8 (Version None)
Quarter: 2009Q3

REPORT INFORMATION
  Report Type: 
  Country: None (occurrence: None)
  Receive Date: 20090814
  Receipt Date: 20090810
  Transmission Date: 20100115
  Serious: Yes (Other)
  Sender: FDA-Public Use
  Company Number: CA-BRISTOL-MYERS SQUIBB COMPANY-14737431

PATIENT
  Age: 72 Year
  Sex: Male

DRUGS (7)
  1. ORENCIA [Suspect]
     Indication: RHEUMATOID ARTHRITIS
     Dosage: 02SEP08,01OCT,05NOV,27NOV,23DEC,20JAN09,17FEB,17MAR,17APR,13MAY,15JUN;(12INF);THERAPY DURAT: Q4
     Route: 042
     Dates: start: 20080805
  2. FOLIC ACID [Concomitant]
  3. METHOTREXATE [Concomitant]
  4. VOLTAREN [Concomitant]
  5. PREDNISONE [Concomitant]
  6. GLUCOPHAGE [Concomitant]
  7. GOLD INJ [Concomitant]

REACTIONS (1)
  - PULMONARY MASS [None]
